FAERS Safety Report 16156738 (Version 1)
Quarter: 2019Q2

REPORT INFORMATION
  Report Type: Spontaneous
  Country: FR (occurrence: FR)
  Receive Date: 20190404
  Receipt Date: 20190404
  Transmission Date: 20190711
  Serious: Yes (Hospitalization)
  Sender: FDA-Public Use
  Company Number: FR-ACCORD-117642

PATIENT
  Age: 70 Year
  Sex: Male
  Weight: 147 kg

DRUGS (6)
  1. FUROSEMIDE. [Suspect]
     Active Substance: FUROSEMIDE
     Indication: OEDEMA PERIPHERAL
     Route: 048
     Dates: start: 201606
  2. IRBESARTAN. [Suspect]
     Active Substance: IRBESARTAN
     Indication: HYPERTENSION
     Route: 048
     Dates: end: 20160629
  3. BRICANYL [Concomitant]
     Active Substance: TERBUTALINE SULFATE
  4. DUPHALAC [Concomitant]
     Active Substance: LACTULOSE
  5. HYPERIUM [Concomitant]
     Active Substance: RILMENIDINE PHOSPHATE
  6. EUPRESSYL [Concomitant]
     Active Substance: URAPIDIL

REACTIONS (1)
  - Acute kidney injury [Recovered/Resolved with Sequelae]

NARRATIVE: CASE EVENT DATE: 20160609
